FAERS Safety Report 10143515 (Version 1)
Quarter: 2014Q2

REPORT INFORMATION
  Report Type: Spontaneous
  Country: US (occurrence: US)
  Receive Date: 20140430
  Receipt Date: 20140430
  Transmission Date: 20141212
  Serious: No
  Sender: FDA-Public Use
  Company Number: US-PFIZER INC-2014115615

PATIENT
  Age: 71 Year
  Sex: Male

DRUGS (1)
  1. SUTENT [Suspect]
     Dosage: 50 MG, DAILY
     Route: 048
     Dates: start: 20140207

REACTIONS (6)
  - Oropharyngeal pain [Unknown]
  - Toothache [Unknown]
  - Gingival pain [Unknown]
  - Fatigue [Unknown]
  - Dizziness [Unknown]
  - Rash [Unknown]
